FAERS Safety Report 23859965 (Version 2)
Quarter: 2024Q3

REPORT INFORMATION
  Report Type: Spontaneous
  Country: US (occurrence: US)
  Receive Date: 20240515
  Receipt Date: 20240808
  Transmission Date: 20241016
  Serious: No
  Sender: SANOFI AVENTIS
  Company Number: US-SA-SAC20240508001159

PATIENT
  Age: 35 Year
  Sex: Male

DRUGS (1)
  1. DUPIXENT [Suspect]
     Active Substance: DUPILUMAB
     Indication: Dermatitis
     Dosage: 300 MG, QOW
     Route: 058

REACTIONS (10)
  - Eczema [Not Recovered/Not Resolved]
  - Migraine [Unknown]
  - Headache [Unknown]
  - Dry skin [Unknown]
  - Sleep disorder due to a general medical condition [Unknown]
  - Toothache [Unknown]
  - Myalgia [Unknown]
  - Pruritus [Unknown]
  - Skin exfoliation [Unknown]
  - Product use in unapproved indication [Unknown]

NARRATIVE: CASE EVENT DATE: 20240701
